FAERS Safety Report 18275192 (Version 1)
Quarter: 2020Q3

REPORT INFORMATION
  Report Type: Spontaneous
  Country: FR (occurrence: FR)
  Receive Date: 20200916
  Receipt Date: 20200916
  Transmission Date: 20201103
  Serious: Yes (Other)
  Sender: FDA-Public Use
  Company Number: FR-ENDO PHARMACEUTICALS INC-2020-006194

PATIENT
  Age: 64 Year
  Sex: Female

DRUGS (4)
  1. RHEUMATREX [Suspect]
     Active Substance: METHOTREXATE SODIUM
     Dosage: 22.5 MG, WEEKLY
     Route: 065
  2. OTHER CHEMOTHERAPEUTICS [Concomitant]
     Active Substance: UNSPECIFIED INGREDIENT
     Indication: CUTANEOUS T-CELL LYMPHOMA
     Dosage: UNK UNKNOWN, UNKNOWN
     Route: 065
  3. RHEUMATREX [Suspect]
     Active Substance: METHOTREXATE SODIUM
     Indication: CUTANEOUS T-CELL LYMPHOMA
     Dosage: 15 MG, WEEKLY (INITIAL DOSAGE)
     Route: 065
  4. BEXAROTENE. [Concomitant]
     Active Substance: BEXAROTENE
     Indication: CUTANEOUS T-CELL LYMPHOMA
     Dosage: UNK UNKNOWN, UNKNOWN
     Route: 065

REACTIONS (1)
  - Diffuse large B-cell lymphoma [Recovered/Resolved]
